FAERS Safety Report 4784797-7 (Version None)
Quarter: 2005Q3

REPORT INFORMATION
  Report Type: 
  Country: None (occurrence: None)
  Receive Date: 20050928
  Receipt Date: 20050919
  Transmission Date: 20060218
  Serious: Yes (Hospitalization, Other)
  Sender: FDA-Public Use
  Company Number: 2005102275

PATIENT
  Age: 53 Year
  Sex: Male
  Weight: 105.6881 kg

DRUGS (3)
  1. LIPITOR [Suspect]
     Indication: HYPERCHOLESTEROLAEMIA
     Dosage: 10 MG (1O MG, 1 IN 1 D), ORAL
     Route: 048
     Dates: start: 20020101, end: 20040110
  2. ACTOS [Concomitant]
  3. ACETYLSALICYLIC ACID SRT [Concomitant]

REACTIONS (6)
  - DEPRESSION [None]
  - DIABETES MELLITUS [None]
  - DIFFICULTY IN WALKING [None]
  - ERECTILE DYSFUNCTION [None]
  - FALL [None]
  - MUSCLE INJURY [None]
